FAERS Safety Report 4314519-5 (Version None)
Quarter: 2004Q1

REPORT INFORMATION
  Report Type: 
  Country: None (occurrence: None)
  Receive Date: 20040308
  Receipt Date: 20040224
  Transmission Date: 20041129
  Serious: Yes (Other)
  Sender: FDA-Public Use
  Company Number: 2004010782

PATIENT
  Sex: Female

DRUGS (30)
  1. NEURONTIN [Suspect]
     Indication: NEUROPATHIC PAIN
     Dosage: 1200 MG QID, ORAL
     Route: 048
  2. HYDROMORPHONE HCL [Concomitant]
  3. POTASSIUM CHLORIDE [Concomitant]
  4. INSULIN GLARGNE (INSULIN GLARGINE) [Concomitant]
  5. INSULIN LISPRO (INSULIN LISPRO) [Concomitant]
  6. ATORVASTATIN CALCIUM [Concomitant]
  7. MAGNESIUM (MAGNESIUM) [Concomitant]
  8. OMEPRAZOLE [Concomitant]
  9. OXYCODONE HCL [Concomitant]
  10. PENTOXIFYLLINE [Concomitant]
  11. PREDNISONE [Concomitant]
  12. TORSEMIDE [Concomitant]
  13. CALCIUM CARBONATE (CALCIUM CARBONATE) [Concomitant]
  14. ACETAMINOPHEN [Concomitant]
  15. ASCORBIC ACID [Concomitant]
  16. TOCOPHEROL CONCENTRATE CAP [Concomitant]
  17. WARFARIN SODIUM [Concomitant]
  18. METOLAZONE [Concomitant]
  19. CETIRIZINE HCL [Concomitant]
  20. ALLOPURINOL [Concomitant]
  21. DARBEPOETIN ALFA (DARBEPOETIN ALFA) [Concomitant]
  22. DIPHENHYDRAMINE HCL [Concomitant]
  23. CALCITROL (ERGOCALCIFEROL, RETINOL, CALCIUM CARBONATE) [Concomitant]
  24. MYCOPHENOLATE MOFETIL (MYCOPHENOLATE MOFETIL) [Concomitant]
  25. CLONAZEPAM [Concomitant]
  26. COLCHICINE (COLCHICINE) [Concomitant]
  27. LOSARTAN POTASSIUM (LOSARTAN POTASSIUM) [Concomitant]
  28. FOLIC ACID [Concomitant]
  29. FUROSEMIDE [Concomitant]
  30. AMITRIPTYLINE HCL [Concomitant]

REACTIONS (4)
  - DRUG LEVEL DECREASED [None]
  - PAIN EXACERBATED [None]
  - PROCEDURAL COMPLICATION [None]
  - XANTHOPSIA [None]
